FAERS Safety Report 8504461 (Version 2)
Quarter: 2013Q1

REPORT INFORMATION
  Report Type: Report from Study
  Country: CA (occurrence: CA)
  Receive Date: 20120411
  Receipt Date: 20130130
  Transmission Date: 20140127
  Serious: Yes (Hospitalization)
  Sender: FDA-Public Use
  Company Number: CA-BIOMARINP-002000

PATIENT
  Age: 23 Year
  Sex: Female
  Weight: 90 kg

DRUGS (7)
  1. KUVAN [Suspect]
     Indication: PHENYLKETONURIA
     Dosage: 1800MG,QD
     Route: 048
     Dates: start: 20110920, end: 20110920
  2. BLINDED PLACEBO [Suspect]
     Indication: PHENYLKETONURIA
     Dosage: 1800MG,QD
     Route: 048
     Dates: start: 20110920, end: 20110920
  3. PAXIL [Concomitant]
     Indication: ANXIETY
     Dosage: 40MG,QD
     Route: 048
     Dates: start: 200404
  4. CLONAZEPAM [Concomitant]
     Indication: PANIC ATTACK
     Route: 048
     Dates: start: 20110121
  5. VITAMIN [Concomitant]
     Indication: VITAMIN SUPPLEMENTATION
     Dosage: UNKUNK,QD
     Route: 048
     Dates: start: 2009
  6. BETADERM CREAM [Concomitant]
     Indication: ECZEMA
     Route: 061
  7. YASMIN [Concomitant]
     Indication: ORAL CONTRACEPTION
     Dosage: UNKUNK,QD
     Route: 048
     Dates: start: 201108, end: 201109

REACTIONS (2)
  - Amino acid level increased [Recovered/Resolved]
  - Exposure during pregnancy [Recovered/Resolved]
